FAERS Safety Report 8622309-8 (Version None)
Quarter: 2012Q3

REPORT INFORMATION
  Report Type: 
  Country: None (occurrence: None)
  Receive Date: 20120827
  Receipt Date: 20120820
  Transmission Date: 20120928
  Serious: Yes (Hospitalization, Other)
  Sender: FDA-Public Use
  Company Number: US-BIOGENIDEC-2005BI010964

PATIENT
  Sex: Female
  Weight: 92 kg

DRUGS (10)
  1. AVONEX [Suspect]
     Route: 030
     Dates: start: 20050201, end: 20050501
  2. GLUCOSAMINE VITAMIN [Concomitant]
     Indication: ROUTINE HEALTH MAINTENANCE
  3. LIPITOR [Concomitant]
     Indication: BLOOD CHOLESTEROL INCREASED
     Dates: start: 20040101
  4. NEURONTIN [Concomitant]
     Indication: TREMOR
     Dates: start: 20050101
  5. REQUIP [Concomitant]
     Indication: TREMOR
     Dates: start: 20050101
  6. ASPIRIN [Concomitant]
     Indication: ANTICOAGULANT THERAPY
     Dates: start: 20040101
  7. PROZAC [Concomitant]
     Indication: DEPRESSION
     Dates: start: 20010101
  8. AVONEX [Suspect]
     Indication: MULTIPLE SCLEROSIS
     Route: 030
  9. SYNTHROID [Concomitant]
     Indication: HYPOTHYROIDISM
  10. PRIM ROSE OIL [Concomitant]
     Indication: HOT FLUSH
     Dates: start: 20030101

REACTIONS (7)
  - SOMNOLENCE [None]
  - CONVULSION [None]
  - CORONARY ARTERIAL STENT INSERTION [None]
  - MYOCARDIAL INFARCTION [None]
  - STRESS [None]
  - HYPERTENSION [None]
  - CARDIAC DISORDER [None]
